FAERS Safety Report 5020400-9 (Version None)
Quarter: 2006Q2

REPORT INFORMATION
  Report Type: 
  Country: None (occurrence: None)
  Receive Date: 20060606
  Receipt Date: 20060522
  Transmission Date: 20061013
  Serious: Yes (Hospitalization)
  Sender: FDA-Public Use
  Company Number: 200605IM000300

PATIENT
  Age: 71 Year
  Sex: Male
  Weight: 136.5327 kg

DRUGS (1)
  1. INTERFERON GAMMA-1B [Suspect]
     Indication: IDIOPATHIC PULMONARY FIBROSIS
     Dosage: 200 MG, TIW, SUBCUTANEOUS
     Route: 058

REACTIONS (1)
  - UPPER RESPIRATORY TRACT INFECTION [None]
